FAERS Safety Report 7451380-4 (Version None)
Quarter: 2011Q2

REPORT INFORMATION
  Report Type: 
  Country: None (occurrence: None)
  Receive Date: 20110422
  Receipt Date: 20110411
  Transmission Date: 20111010
  Serious: Yes (Hospitalization)
  Sender: FDA-Public Use
  Company Number: 2011001672

PATIENT
  Age: 69 Year
  Sex: Male

DRUGS (2)
  1. TARCEVA [Suspect]
     Indication: LUNG NEOPLASM MALIGNANT
     Dosage: (150 MG,DAILY),ORAL ; (100 MG,DAILY),ORAL
     Route: 048
     Dates: start: 20110124
  2. TARCEVA [Suspect]
     Indication: LUNG NEOPLASM MALIGNANT
     Dosage: (150 MG,DAILY),ORAL ; (100 MG,DAILY),ORAL
     Route: 048
     Dates: start: 20110101

REACTIONS (2)
  - LUNG DISORDER [None]
  - RASH PRURITIC [None]
